FAERS Safety Report 4869632-0 (Version None)
Quarter: 2005Q4

REPORT INFORMATION
  Report Type: 
  Country: None (occurrence: None)
  Receive Date: 20051227
  Receipt Date: 20051221
  Transmission Date: 20060501
  Serious: Yes (Hospitalization, Other)
  Sender: FDA-Public Use
  Company Number: HQWYE111921DEC05

PATIENT
  Age: 98 Year
  Sex: Female

DRUGS (7)
  1. PANTOPRAZOLE SODIUM [Suspect]
     Dosage: 40 MG 1X PER 1 DAY
     Route: 048
     Dates: start: 20050709, end: 20050808
  2. NICARDIPINE HCL [Concomitant]
  3. FORLAX (MACROGOL) [Concomitant]
  4. CACIT (CALCIUM CARBONATE/CITRIC ACID,) [Suspect]
     Dosage: 1000 MG 1X PER 1 DAY
     Route: 048
     Dates: start: 20050729, end: 20050808
  5. SPECIAFOLDINE (FOLIC ACID) [Suspect]
     Route: 048
     Dates: start: 20050718, end: 20050808
  6. TAHOR (ATORVASTATIN) [Suspect]
     Route: 048
     Dates: start: 20050718, end: 20050808
  7. TIORFAN (ACETORPHAN) [Suspect]
     Route: 048
     Dates: start: 20050726, end: 20050805

REACTIONS (6)
  - FALL [None]
  - IRON DEFICIENCY ANAEMIA [None]
  - MICROCYTIC ANAEMIA [None]
  - RASH ERYTHEMATOUS [None]
  - RASH PAPULAR [None]
  - SKIN TOXICITY [None]
